FAERS Safety Report 6105668-X (Version None)
Quarter: 2009Q1

REPORT INFORMATION
  Report Type: 
  Country: None (occurrence: None)
  Receive Date: 20090227
  Receipt Date: 20080919
  Transmission Date: 20090719
  Serious: Yes (Hospitalization, Other)
  Sender: FDA-Public Use
  Company Number: RB-4213-2008

PATIENT
  Sex: Male
  Weight: 3.5381 kg

DRUGS (3)
  1. SUBOXONE [Suspect]
     Indication: DRUG DEPENDENCE
     Dosage: 1.5 MG TRANSPLACENTAL
     Route: 064
     Dates: start: 20070201, end: 20080128
  2. SUBUTEX [Suspect]
     Indication: DRUG DEPENDENCE
     Dosage: 1.5 MG TRANSPLACENTAL, 6 MG QD TRANSPLACENTAL
     Route: 064
     Dates: start: 20080129, end: 20080301
  3. SUBUTEX [Suspect]
     Indication: DRUG DEPENDENCE
     Dosage: 1.5 MG TRANSPLACENTAL, 6 MG QD TRANSPLACENTAL
     Route: 064
     Dates: start: 20080301, end: 20080805

REACTIONS (1)
  - DRUG WITHDRAWAL SYNDROME NEONATAL [None]
